FAERS Safety Report 5158092-0 (Version None)
Quarter: 2006Q4

REPORT INFORMATION
  Report Type: 
  Country: None (occurrence: None)
  Receive Date: 20061117
  Receipt Date: 20061110
  Transmission Date: 20070319
  Serious: Yes (Other)
  Sender: FDA-Public Use
  Company Number: 2006113506

PATIENT
  Age: 22 Year
  Sex: Female

DRUGS (2)
  1. ZOLOFT [Suspect]
     Indication: DEPRESSION
     Dosage: 50 MG (50 MG, 1 IN 1 D), ORAL
     Route: 048
     Dates: start: 20040101, end: 20050101
  2. CITALOPRAM HYDROBROMIDE [Suspect]
     Indication: DEPRESSION

REACTIONS (17)
  - AMNESIA [None]
  - BLUNTED AFFECT [None]
  - FATIGUE [None]
  - FEELING ABNORMAL [None]
  - FEELING DRUNK [None]
  - FUMBLING [None]
  - HEADACHE [None]
  - HYPERHIDROSIS [None]
  - HYPOAESTHESIA [None]
  - HYPOMETABOLISM [None]
  - INSOMNIA [None]
  - MEMORY IMPAIRMENT [None]
  - PHOTOPHOBIA [None]
  - PSYCHOTIC DISORDER [None]
  - THINKING ABNORMAL [None]
  - UNEVALUABLE EVENT [None]
  - WEIGHT INCREASED [None]
